FAERS Safety Report 11246543 (Version 1)
Quarter: 2015Q3

REPORT INFORMATION
  Report Type: Spontaneous
  Country: US (occurrence: None)
  Receive Date: 20150706
  Receipt Date: 20150706
  Transmission Date: 20151125
  Serious: No
  Sender: FDA-Public Use
  Company Number: None

PATIENT
  Age: 20 Year
  Sex: Male
  Weight: 77.11 kg

DRUGS (4)
  1. FLONASE [Suspect]
     Active Substance: FLUTICASONE PROPIONATE
     Indication: NASAL INFLAMMATION
     Dates: start: 20150604, end: 20150609
  2. VALPROIC ACID. [Concomitant]
     Active Substance: VALPROIC ACID
  3. VIMPAT [Concomitant]
     Active Substance: LACOSAMIDE
  4. METFORMIN [Concomitant]
     Active Substance: METFORMIN HYDROCHLORIDE

REACTIONS (5)
  - Asthenia [None]
  - Seizure [None]
  - Condition aggravated [None]
  - Blood pressure increased [None]
  - Oxygen saturation decreased [None]

NARRATIVE: CASE EVENT DATE: 20150608
